FAERS Safety Report 8476430-8 (Version None)
Quarter: 2012Q2

REPORT INFORMATION
  Report Type: 
  Country: None (occurrence: None)
  Receive Date: 20120619
  Receipt Date: 20120608
  Transmission Date: 20120825
  Serious: Yes (Death, Hospitalization)
  Sender: FDA-Public Use
  Company Number: WAES 1205USA00607

PATIENT
  Age: 68 Year
  Sex: Male

DRUGS (9)
  1. METOPROLOL [Concomitant]
  2. RAMIPRIL [Concomitant]
  3. IMIPRAMINE HCL [Concomitant]
  4. VYTORIN [Suspect]
     Indication: ACUTE CORONARY SYNDROME
     Dosage: 10-40 MG/DAILY
     Route: 048
     Dates: start: 20060517
  5. PLACEBO [Suspect]
     Indication: ACUTE CORONARY SYNDROME
     Route: 048
     Dates: start: 20060517
  6. PLACEBO [Suspect]
     Indication: ACUTE CORONARY SYNDROME
     Route: 048
     Dates: start: 20060517
  7. ASPIRIN [Concomitant]
  8. HYDROCHLOROTHIAZIDE [Concomitant]
  9. WARFARIN SODIUM [Concomitant]

REACTIONS (4)
  - HEPATORENAL SYNDROME [None]
  - PNEUMONIA [None]
  - HEPATIC NEOPLASM MALIGNANT [None]
  - BILIARY CANCER METASTATIC [None]
